FAERS Safety Report 16999628 (Version 1)
Quarter: 2019Q4

REPORT INFORMATION
  Report Type: Spontaneous
  Country: US (occurrence: US)
  Receive Date: 20191106
  Receipt Date: 20191106
  Transmission Date: 20200122
  Serious: No
  Sender: FDA-Public Use
  Company Number: US-DRREDDYS-USA/USA/19/0115524

PATIENT
  Sex: Female

DRUGS (1)
  1. HABITROL [Suspect]
     Active Substance: NICOTINE
     Indication: TOBACCO USER
     Route: 062
     Dates: start: 20191012

REACTIONS (5)
  - Underdose [Unknown]
  - Application site pruritus [Unknown]
  - Application site rash [Unknown]
  - Urticaria [Unknown]
  - Product adhesion issue [Unknown]
